FAERS Safety Report 25362463 (Version 1)
Quarter: 2025Q2

REPORT INFORMATION
  Report Type: Spontaneous
  Country: US (occurrence: None)
  Receive Date: 20250523
  Receipt Date: 20250523
  Transmission Date: 20250716
  Serious: Yes (Other)
  Sender: FDA-CTU
  Company Number: None

PATIENT
  Age: 25 Year
  Sex: Female
  Weight: 52.65 kg

DRUGS (3)
  1. QELBREE [Suspect]
     Active Substance: VILOXAZINE HYDROCHLORIDE
     Indication: Attention deficit hyperactivity disorder
     Route: 048
     Dates: start: 20250506, end: 20250521
  2. LEXAPRO [Concomitant]
     Active Substance: ESCITALOPRAM OXALATE
  3. ADULT MULTI VITAMIN GUMMIES [Concomitant]

REACTIONS (7)
  - Headache [None]
  - Migraine [None]
  - Vomiting [None]
  - Hot flush [None]
  - Chills [None]
  - Product use issue [None]
  - Therapy interrupted [None]

NARRATIVE: CASE EVENT DATE: 20250522
